FAERS Safety Report 5478317-1 (Version None)
Quarter: 2007Q4

REPORT INFORMATION
  Report Type: 
  Country: None (occurrence: None)
  Receive Date: 20071005
  Receipt Date: 20071004
  Transmission Date: 20080405
  Serious: Yes (Other)
  Sender: FDA-Public Use
  Company Number: A0685758A

PATIENT
  Age: 68 Year
  Sex: Male

DRUGS (3)
  1. NICODERM CQ [Suspect]
     Dates: start: 20070924, end: 20070925
  2. DEPAKOTE [Suspect]
     Indication: DRUG USE FOR UNKNOWN INDICATION
  3. GEODON [Suspect]
     Indication: DRUG USE FOR UNKNOWN INDICATION

REACTIONS (9)
  - DISORIENTATION [None]
  - DRUG INTERACTION [None]
  - FEELING ABNORMAL [None]
  - HALLUCINATION [None]
  - HYPOVENTILATION [None]
  - MEMORY IMPAIRMENT [None]
  - NIGHTMARE [None]
  - NONSPECIFIC REACTION [None]
  - RESPIRATORY RATE INCREASED [None]
